FAERS Safety Report 18144722 (Version 1)
Quarter: 2020Q3

REPORT INFORMATION
  Report Type: Spontaneous
  Country: US (occurrence: US)
  Receive Date: 20200813
  Receipt Date: 20200813
  Transmission Date: 20201103
  Serious: No
  Sender: FDA-Public Use
  Company Number: US-NOVEN PHARMACEUTICALS, INC.-US2019000453

PATIENT

DRUGS (6)
  1. ROSUVASTATIN. [Concomitant]
     Active Substance: ROSUVASTATIN
     Indication: BLOOD CHOLESTEROL INCREASED
     Dosage: 5 MG, UNK
  2. WELLBUTRIN [Concomitant]
     Active Substance: BUPROPION HYDROCHLORIDE
     Indication: MOOD SWINGS
  3. TIMOLOL. [Concomitant]
     Active Substance: TIMOLOL
     Indication: GLAUCOMA
  4. COMBIPATCH [Suspect]
     Active Substance: ESTRADIOL\NORETHINDRONE ACETATE
     Indication: VULVOVAGINAL DRYNESS
  5. COMBIPATCH [Suspect]
     Active Substance: ESTRADIOL\NORETHINDRONE ACETATE
     Indication: HOT FLUSH
     Dosage: LOWER STRENGTH, UNKNOWN
     Route: 062
     Dates: start: 201905, end: 201907
  6. COMBIPATCH [Suspect]
     Active Substance: ESTRADIOL\NORETHINDRONE ACETATE
     Indication: MOOD SWINGS
     Dosage: 50/250 ?G, UNKNOWN
     Route: 062
     Dates: start: 201907, end: 20190801

REACTIONS (12)
  - Application site hypersensitivity [Unknown]
  - Dysmenorrhoea [Unknown]
  - Application site pain [Unknown]
  - Application site erythema [Unknown]
  - Breast tenderness [Unknown]
  - Postmenopausal haemorrhage [Unknown]
  - Product quality issue [Recovered/Resolved]
  - Off label use [Recovered/Resolved]
  - Application site rash [Unknown]
  - Application site pruritus [Unknown]
  - Product administered at inappropriate site [Recovered/Resolved]
  - Application site urticaria [Unknown]

NARRATIVE: CASE EVENT DATE: 2019
